FAERS Safety Report 7910472-3 (Version None)
Quarter: 2011Q4

REPORT INFORMATION
  Report Type: 
  Country: None (occurrence: None)
  Receive Date: 20111111
  Receipt Date: 20111102
  Transmission Date: 20120403
  Serious: Yes (Hospitalization)
  Sender: FDA-Public Use
  Company Number: PHEH2009US00440

PATIENT
  Sex: Female

DRUGS (15)
  1. NITROGLYCERIN [Concomitant]
  2. SCOPOLAMINE [Concomitant]
  3. MELOXICAM [Concomitant]
  4. MAGNESIUM HYDROXIDE TAB [Concomitant]
  5. ASPIRIN [Concomitant]
  6. AMOXIL [Concomitant]
     Dosage: UNK
  7. REGLAN [Concomitant]
  8. MULTI-VITAMIN [Concomitant]
  9. AMITRIPTYLINE HCL [Concomitant]
  10. NEURONTIN [Concomitant]
     Dosage: UNK
  11. LEXAPRO [Concomitant]
  12. CALCIUM CARBONATE [Concomitant]
     Dosage: UNK
  13. TASIGNA [Suspect]
     Indication: CHRONIC MYELOID LEUKAEMIA
     Dosage: 200 MG, BID
     Route: 048
     Dates: start: 20081101
  14. ZOFRAN [Concomitant]
     Dosage: UNK
  15. FIBER [Concomitant]
     Dosage: UNK

REACTIONS (7)
  - GASTROINTESTINAL DISORDER [None]
  - DIARRHOEA [None]
  - CHEST DISCOMFORT [None]
  - DYSPEPSIA [None]
  - CONSTIPATION [None]
  - HYPOAESTHESIA [None]
  - NAUSEA [None]
